FAERS Safety Report 5492174-9 (Version None)
Quarter: 2007Q4

REPORT INFORMATION
  Report Type: 
  Country: None (occurrence: None)
  Receive Date: 20071022
  Receipt Date: 20071012
  Transmission Date: 20080405
  Serious: Yes (Other)
  Sender: FDA-Public Use
  Company Number: DE-ROCHE-518126

PATIENT
  Age: 62 Year
  Sex: Female

DRUGS (1)
  1. BONIVA [Suspect]
     Indication: DRUG USE FOR UNKNOWN INDICATION
     Dosage: FORM: INJECTION. STRENGTH: 3 MG/3ML. RECEIVED THIRD QUARTERLY DOSE ON 13 SEP 2007
     Route: 042
     Dates: start: 20070101, end: 20070901

REACTIONS (1)
  - RETINAL DISORDER [None]
